FAERS Safety Report 6091302-4 (Version None)
Quarter: 2009Q1

REPORT INFORMATION
  Report Type: 
  Country: None (occurrence: None)
  Receive Date: 20090220
  Receipt Date: 20090220
  Transmission Date: 20090719
  Serious: Yes (Other)
  Sender: FDA-Public Use
  Company Number: None

PATIENT
  Age: 48 Year
  Sex: Female
  Weight: 50.8029 kg

DRUGS (1)
  1. DEPAKOTE [Suspect]
     Indication: ANXIETY
     Dosage: 750 MG. 1 TIME PER DAY PO
     Route: 048

REACTIONS (1)
  - SUICIDAL IDEATION [None]
